FAERS Safety Report 19692514 (Version 1)
Quarter: 2021Q3

REPORT INFORMATION
  Report Type: Spontaneous
  Country: CH (occurrence: CH)
  Receive Date: 20210812
  Receipt Date: 20210812
  Transmission Date: 20211014
  Serious: Yes (Other)
  Sender: FDA-Public Use
  Company Number: CH-ASTRAZENECA-2021A678587

PATIENT
  Age: 45 Year
  Sex: Male

DRUGS (18)
  1. VIMPAT [Interacting]
     Active Substance: LACOSAMIDE
     Indication: GENERALISED TONIC-CLONIC SEIZURE
     Dosage: 100 MILLIGRAM, 2/DAY
     Route: 048
     Dates: start: 20210627
  2. MEROPENEM LABATEC [Suspect]
     Active Substance: MEROPENEM
     Indication: ABDOMINAL INFECTION
     Dosage: 1 GRAM, EVERY 12 HRS
     Route: 041
     Dates: start: 20210628
  3. LANTUS [Concomitant]
     Active Substance: INSULIN GLARGINE
     Indication: PRODUCT USED FOR UNKNOWN INDICATION
     Dosage: UNK
     Route: 058
  4. IMUREK [Concomitant]
     Active Substance: AZATHIOPRINE
     Indication: PRODUCT USED FOR UNKNOWN INDICATION
     Dosage: 50 MILLIGRAM, 1/DAY
     Route: 048
     Dates: end: 20210614
  5. IMIPENEM CILASTATIN LABATEC [Suspect]
     Active Substance: CILASTATIN SODIUM\IMIPENEM
     Indication: ABDOMINAL INFECTION
     Dosage: UNK
     Route: 041
     Dates: start: 20210614, end: 20210628
  6. VIMPAT [Interacting]
     Active Substance: LACOSAMIDE
     Indication: GENERALISED TONIC-CLONIC SEIZURE
     Dosage: 100 MILLIGRAM, 1/DAY
     Route: 048
     Dates: start: 2013, end: 20210626
  7. PLAQUENIL [Concomitant]
     Active Substance: HYDROXYCHLOROQUINE SULFATE
     Indication: PRODUCT USED FOR UNKNOWN INDICATION
     Dosage: 200 MILLIGRAM, 1/DAY
     Route: 048
     Dates: end: 20210614
  8. AMLODIPIN?MEPHA [Concomitant]
     Active Substance: AMLODIPINE MESYLATE
     Indication: PRODUCT USED FOR UNKNOWN INDICATION
     Dosage: 5 MILLIGRAM, 1/DAY
     Route: 048
     Dates: start: 202106
  9. NEXIUM [Suspect]
     Active Substance: ESOMEPRAZOLE MAGNESIUM
     Indication: PRODUCT USED FOR UNKNOWN INDICATION
     Dosage: 40 MILLIGRAM, 2/DAY
     Route: 048
     Dates: start: 202106
  10. PREDNISON STREULI [Concomitant]
     Active Substance: PREDNISONE
     Indication: PRODUCT USED FOR UNKNOWN INDICATION
     Dosage: 10 MILLIGRAM, 1/DAY
     Route: 048
     Dates: start: 20210706
  11. INSULATARD HM [Concomitant]
     Active Substance: INSULIN HUMAN
     Indication: PRODUCT USED FOR UNKNOWN INDICATION
     Dosage: 35 INTERNATIONAL UNIT, 1/DAY
     Route: 058
     Dates: start: 202106
  12. HEPARIN [Concomitant]
     Active Substance: HEPARIN SODIUM
     Indication: PRODUCT USED FOR UNKNOWN INDICATION
     Dosage: 40000 INTERNATIONAL UNIT, 1/DAY
     Route: 041
     Dates: start: 202106
  13. DIFLUCAN [Suspect]
     Active Substance: FLUCONAZOLE
     Indication: ABDOMINAL INFECTION
     Dosage: 400 MILLIGRAM, 1/DAY
     Route: 048
     Dates: start: 20210614
  14. PREDNISON STREULI [Concomitant]
     Active Substance: PREDNISONE
     Indication: PRODUCT USED FOR UNKNOWN INDICATION
     Dosage: 20 MILLIGRAM, 1/DAY
     Route: 048
     Dates: end: 202106
  15. PARACETAMOL [Concomitant]
     Active Substance: ACETAMINOPHEN
     Indication: PRODUCT USED FOR UNKNOWN INDICATION
     Dosage: 1 GRAM, 4/DAY
     Route: 048
  16. PASPERTIN [Concomitant]
     Indication: PRODUCT USED FOR UNKNOWN INDICATION
     Dosage: 10 MILLIGRAM, AS NEEDED10.0MG INTERMITTENT
     Route: 048
     Dates: start: 202106
  17. PREDNISON STREULI [Concomitant]
     Active Substance: PREDNISONE
     Indication: PRODUCT USED FOR UNKNOWN INDICATION
     Dosage: 12.5 MILLIGRAM, 1/DAY
     Route: 048
     Dates: start: 202106, end: 20210705
  18. VENTOLIN [Concomitant]
     Active Substance: ALBUTEROL SULFATE
     Indication: PRODUCT USED FOR UNKNOWN INDICATION
     Dosage: 1 DOSAGE FORM, AS NEEDED1.0DF INTERMITTENT
     Route: 055

REACTIONS (6)
  - Drug interaction [Unknown]
  - Generalised tonic-clonic seizure [Recovered/Resolved]
  - Nightmare [Not Recovered/Not Resolved]
  - Renal failure [Unknown]
  - Hallucination [Not Recovered/Not Resolved]
  - Hyponatraemia [Unknown]

NARRATIVE: CASE EVENT DATE: 20210626
